FAERS Safety Report 9018379 (Version 3)
Quarter: 2013Q2

REPORT INFORMATION
  Report Type: Spontaneous
  Country: US (occurrence: US)
  Receive Date: 20130118
  Receipt Date: 20130417
  Transmission Date: 20140414
  Serious: Yes (Other)
  Sender: FDA-Public Use
  Company Number: US-PFIZER INC-2013022009

PATIENT
  Age: 50 Year
  Sex: Female
  Weight: 59.86 kg

DRUGS (5)
  1. LYRICA [Suspect]
     Indication: NEUROPATHY PERIPHERAL
     Dosage: 100 MG, UNK
     Route: 048
  2. LYRICA [Suspect]
     Dosage: 200 MG, UNK
     Route: 048
  3. LYRICA [Suspect]
     Dosage: 300 MG, UNK
     Route: 048
     Dates: end: 201302
  4. LYRICA [Suspect]
     Dosage: 400 MG, UNK
     Route: 048
     Dates: start: 201302
  5. TOPAMAX [Concomitant]
     Dosage: UNK

REACTIONS (2)
  - Drug tolerance [Unknown]
  - Pain [Not Recovered/Not Resolved]
